FAERS Safety Report 15795647 (Version 1)
Quarter: 2019Q1

REPORT INFORMATION
  Report Type: Spontaneous
  Country: US (occurrence: US)
  Receive Date: 20190107
  Receipt Date: 20190107
  Transmission Date: 20190417
  Serious: No
  Sender: FDA-Public Use
  Company Number: US-MYLANLABS-2018M1093841

PATIENT

DRUGS (3)
  1. OCTREOTIDE ACETATE INJECTION [Suspect]
     Active Substance: OCTREOTIDE ACETATE
     Indication: DIARRHOEA
     Dosage: 100 MICROGRAM PER MILLILITRE, BID
     Route: 058
     Dates: start: 2018
  2. AMLODIPINE BESYLATE. [Concomitant]
     Active Substance: AMLODIPINE BESYLATE
     Dosage: UNK
  3. CEPHALEXIN                         /00145501/ [Concomitant]
     Active Substance: CEPHALEXIN
     Dosage: UNK

REACTIONS (1)
  - Blood potassium decreased [Not Recovered/Not Resolved]

NARRATIVE: CASE EVENT DATE: 2018
